FAERS Safety Report 6688294-3 (Version None)
Quarter: 2010Q2

REPORT INFORMATION
  Report Type: 
  Country: None (occurrence: None)
  Receive Date: 20100420
  Receipt Date: 20100413
  Transmission Date: 20101027
  Serious: Yes (Hospitalization, Other)
  Sender: FDA-Public Use
  Company Number: CA-ROCHE-680935

PATIENT
  Sex: Female
  Weight: 51.7 kg

DRUGS (3)
  1. BEVACIZUMAB [Suspect]
     Indication: BREAST CANCER
     Dosage: FORM: INFUSION
     Route: 042
     Dates: start: 20091230
  2. DOCETAXEL [Concomitant]
     Indication: BREAST CANCER
  3. CARBOPLATIN [Concomitant]
     Indication: BREAST CANCER

REACTIONS (5)
  - CHOLURIA [None]
  - INFECTION [None]
  - PYREXIA [None]
  - RED BLOOD CELL COUNT DECREASED [None]
  - WHITE BLOOD CELL COUNT DECREASED [None]
